FAERS Safety Report 18536713 (Version 1)
Quarter: 2020Q4

REPORT INFORMATION
  Report Type: Spontaneous
  Country: US (occurrence: US)
  Receive Date: 20201123
  Receipt Date: 20201123
  Transmission Date: 20210114
  Serious: No
  Sender: FDA-Public Use
  Company Number: US-EDENBRIDGE PHARMACEUTICALS, LLC-US-2020EDE000023

PATIENT

DRUGS (2)
  1. IVERMECTIN. [Suspect]
     Active Substance: IVERMECTIN
     Indication: ACARODERMATITIS
     Dosage: 9 DF, (AS FIRST THERAPY)
  2. IVERMECTIN. [Suspect]
     Active Substance: IVERMECTIN
     Dosage: 9 DF, (AS LAST THERPAY)

REACTIONS (3)
  - Dry skin [Unknown]
  - Rash [Unknown]
  - Skin exfoliation [Unknown]
